FAERS Safety Report 8470685-1 (Version None)
Quarter: 2012Q2

REPORT INFORMATION
  Report Type: 
  Country: None (occurrence: None)
  Receive Date: 20120627
  Receipt Date: 20120622
  Transmission Date: 20120825
  Serious: No
  Sender: FDA-Public Use
  Company Number: US-PFIZER INC-2012137537

PATIENT
  Sex: Female

DRUGS (3)
  1. XANAX [Concomitant]
     Dosage: UNK
     Dates: start: 20110101
  2. PROTONIX [Suspect]
     Indication: GASTRITIS
     Dosage: 40 MG, DAILY
     Route: 048
     Dates: start: 20110101, end: 20110101
  3. LIPITOR [Concomitant]
     Dosage: UNK
     Dates: start: 20110101, end: 20110101

REACTIONS (2)
  - DYSPHONIA [None]
  - GASTROOESOPHAGEAL REFLUX DISEASE [None]
